FAERS Safety Report 16068746 (Version 2)
Quarter: 2019Q2

REPORT INFORMATION
  Report Type: Spontaneous
  Country: US (occurrence: US)
  Receive Date: 20190313
  Receipt Date: 20190508
  Transmission Date: 20190711
  Serious: No
  Sender: FDA-Public Use
  Company Number: US-ASTRAZENECA-2018SF39895

PATIENT
  Age: 17826 Day
  Sex: Female
  Weight: 88.9 kg

DRUGS (2)
  1. BYDUREON BCISE [Suspect]
     Active Substance: EXENATIDE
     Indication: TYPE 1 DIABETES MELLITUS
     Route: 058
     Dates: start: 20181019
  2. BYDUREON BCISE [Suspect]
     Active Substance: EXENATIDE
     Indication: TYPE 2 DIABETES MELLITUS
     Route: 058
     Dates: start: 20181019

REACTIONS (6)
  - Injection site haemorrhage [Unknown]
  - Device leakage [Unknown]
  - Device malfunction [Not Recovered/Not Resolved]
  - Wrong technique in product usage process [Unknown]
  - Intentional product misuse [Unknown]
  - Incorrect dose administered [Unknown]

NARRATIVE: CASE EVENT DATE: 20181019
